FAERS Safety Report 16278653 (Version 2)
Quarter: 2019Q3

REPORT INFORMATION
  Report Type: Not Available
  Country: US (occurrence: US)
  Receive Date: 20190506
  Receipt Date: 20190730
  Transmission Date: 20191004
  Serious: No
  Sender: FDA-Public Use
  Company Number: US-NEUROCRINE BIOSCIENCES INC.-2019NBI01087

PATIENT
  Age: 63 Year
  Sex: Female

DRUGS (12)
  1. PROBIOTIC [Concomitant]
     Active Substance: PROBIOTICS NOS
  2. LEVOTHYROXINE. [Concomitant]
     Active Substance: LEVOTHYROXINE
  3. TIZANIDINE. [Concomitant]
     Active Substance: TIZANIDINE
  4. INGREZZA [Suspect]
     Active Substance: VALBENAZINE
     Indication: TARDIVE DYSKINESIA
     Route: 048
     Dates: start: 20180710
  5. XANAX [Concomitant]
     Active Substance: ALPRAZOLAM
  6. INGREZZA [Suspect]
     Active Substance: VALBENAZINE
     Route: 048
  7. MELATONIN [Concomitant]
     Active Substance: MELATONIN
  8. HYDROCODONE [Concomitant]
     Active Substance: HYDROCODONE
  9. FLONASE [Concomitant]
     Active Substance: FLUTICASONE PROPIONATE
  10. VITAMIN D [Concomitant]
     Active Substance: VITAMIN D NOS
  11. TYLENOL [Concomitant]
     Active Substance: ACETAMINOPHEN
  12. MELOXICAM. [Concomitant]
     Active Substance: MELOXICAM

REACTIONS (2)
  - Paraesthesia [Recovered/Resolved]
  - Feeling abnormal [Recovered/Resolved]

NARRATIVE: CASE EVENT DATE: 201904
